FAERS Safety Report 19930114 (Version 1)
Quarter: 2021Q4

REPORT INFORMATION
  Report Type: Spontaneous
  Country: US (occurrence: US)
  Receive Date: 20211007
  Receipt Date: 20211007
  Transmission Date: 20220303
  Serious: Yes (Hospitalization, Other)
  Sender: FDA-Public Use
  Company Number: US-VERTEX PHARMACEUTICALS-2021-010761

PATIENT
  Sex: Female
  Weight: 63 kg

DRUGS (10)
  1. TRIKAFTA [Suspect]
     Active Substance: ELEXACAFTOR\IVACAFTOR\TEZACAFTOR
     Indication: Cystic fibrosis
     Dosage: 2 TABS (100 MG ELEXACAFTOR/ 50 MG TEZACAFTOR/ 75 MG IVACAFTOR) AM AND 1 TAB (150MG IVACAFTOR) PM
     Route: 048
     Dates: start: 20210505
  2. TOB [TOBRAMYCIN] [Concomitant]
  3. TRULANCE [Concomitant]
     Active Substance: PLECANATIDE
  4. PULMOZYME [Concomitant]
     Active Substance: DORNASE ALFA
  5. WELLBUTRIN [Concomitant]
     Active Substance: BUPROPION HYDROCHLORIDE
  6. CYMBALTA [Concomitant]
     Active Substance: DULOXETINE HYDROCHLORIDE
  7. KEPPRA [Concomitant]
     Active Substance: LEVETIRACETAM
  8. GEODON [Concomitant]
     Active Substance: ZIPRASIDONE HYDROCHLORIDE\ZIPRASIDONE MESYLATE
  9. LYRICA [Concomitant]
     Active Substance: PREGABALIN
  10. CAYSTON [Concomitant]
     Active Substance: AZTREONAM

REACTIONS (2)
  - Nervous system disorder [Unknown]
  - Seizure [Unknown]

NARRATIVE: CASE EVENT DATE: 20210101
